FAERS Safety Report 13398620 (Version 1)
Quarter: 2017Q2

REPORT INFORMATION
  Report Type: Report from Study
  Country: None (occurrence: IT)
  Receive Date: 20170403
  Receipt Date: 20170403
  Transmission Date: 20170830
  Serious: Yes (Death)
  Sender: FDA-Public Use
  Company Number: IT-ABBVIE-17P-083-1923890-00

PATIENT
  Age: 79 Year
  Sex: Female
  Weight: 75 kg

DRUGS (1)
  1. DUODOPA [Suspect]
     Active Substance: CARBIDOPA\LEVODOPA
     Indication: PARKINSON^S DISEASE
     Dosage: MD 9 +3, CR 4,5, ED 3
     Route: 050
     Dates: start: 20161219, end: 20170310

REACTIONS (2)
  - Transient ischaemic attack [Fatal]
  - General physical condition abnormal [Fatal]

NARRATIVE: CASE EVENT DATE: 20170310
